FAERS Safety Report 6976468-3 (Version None)
Quarter: 2010Q3

REPORT INFORMATION
  Report Type: 
  Country: None (occurrence: None)
  Receive Date: 20100910
  Receipt Date: 20100805
  Transmission Date: 20110219
  Serious: No
  Sender: FDA-Public Use
  Company Number: US-PFIZER INC-2010099266

PATIENT
  Sex: Female

DRUGS (9)
  1. COLESTID [Suspect]
     Indication: DIARRHOEA
     Dosage: 1 G, 2X/DAY
     Route: 048
     Dates: start: 20100201
  2. TOPROL-XL [Concomitant]
     Dosage: 25 MG DAILY
     Route: 048
  3. ZETIA [Concomitant]
     Dosage: 10 MG DAILY
     Route: 048
  4. RANEXA [Concomitant]
     Dosage: 1000 MG, 2X/DAY
     Route: 048
  5. CRESTOR [Concomitant]
     Dosage: 20 MG DAILY
     Route: 048
  6. VALSARTAN [Concomitant]
     Dosage: 80 MG DAILY
     Route: 048
  7. AMLODIPINE [Concomitant]
     Dosage: 5 MG DAILY
  8. PLAVIX [Concomitant]
     Dosage: 75 MG DAILY
     Route: 048
  9. ISOSORBIDE MONONITRATE [Concomitant]
     Dosage: 60 MG DAILY

REACTIONS (3)
  - DRUG INEFFECTIVE [None]
  - MEDICATION RESIDUE [None]
  - OFF LABEL USE [None]
